FAERS Safety Report 25488191 (Version 1)
Quarter: 2025Q2

REPORT INFORMATION
  Report Type: Spontaneous
  Country: US (occurrence: US)
  Receive Date: 20250627
  Receipt Date: 20250627
  Transmission Date: 20250716
  Serious: Yes (Hospitalization)
  Sender: GRIFOLS
  Company Number: US-IGSA-BIG0036141

PATIENT
  Sex: Female
  Weight: 79.819 kg

DRUGS (17)
  1. PROLASTIN-C LIQUID [Suspect]
     Active Substance: .ALPHA.1-PROTEINASE INHIBITOR HUMAN
     Indication: Alpha-1 antitrypsin deficiency
     Dosage: 5125 MILLIGRAM, Q.WK.
     Route: 042
  2. DILTIAZEM [Concomitant]
     Active Substance: DILTIAZEM
  3. BUDESONIDE [Concomitant]
     Active Substance: BUDESONIDE
  4. DOCUSATE SODIUM [Concomitant]
     Active Substance: DOCUSATE SODIUM
     Route: 048
  5. DALIRESP [Concomitant]
     Active Substance: ROFLUMILAST
     Route: 048
  6. PANTOPRAZOLE SODIUM [Concomitant]
     Active Substance: PANTOPRAZOLE SODIUM
     Route: 048
  7. AZITHROMYCIN [Concomitant]
     Active Substance: AZITHROMYCIN
     Route: 048
  8. MONTELUKAST SODIUM [Concomitant]
     Active Substance: MONTELUKAST SODIUM
     Route: 048
  9. VITAMIN B COMPLEX W C [ASCORBIC ACID;CALCIUM PANTOTHENATE;CYANOCOBALAM [Concomitant]
     Route: 048
  10. DIPHENHYDRAMINE HYDROCHLORIDE [Concomitant]
     Active Substance: DIPHENHYDRAMINE HYDROCHLORIDE
  11. EPINEPHRINE [Concomitant]
     Active Substance: EPINEPHRINE
  12. LIDOCAINE [Concomitant]
     Active Substance: LIDOCAINE
  13. SODIUM CHLORIDE [Concomitant]
     Active Substance: SODIUM CHLORIDE
  14. XARELTO [Concomitant]
     Active Substance: RIVAROXABAN
  15. NITROGLYCERIN [Concomitant]
     Active Substance: NITROGLYCERIN
     Route: 048
  16. ALBUTEROL SULFATE [Concomitant]
     Active Substance: ALBUTEROL SULFATE
  17. OXYGEN [Concomitant]
     Active Substance: OXYGEN

REACTIONS (1)
  - Gastrointestinal haemorrhage [Unknown]
